FAERS Safety Report 4276777-5 (Version None)
Quarter: 2004Q1

REPORT INFORMATION
  Report Type: 
  Country: None (occurrence: None)
  Receive Date: 20040120
  Receipt Date: 20040116
  Transmission Date: 20041129
  Serious: Yes (Death, Hospitalization, Other)
  Sender: FDA-Public Use
  Company Number: 200410036BNE

PATIENT
  Age: 52 Year
  Sex: Male
  Weight: 90 kg

DRUGS (8)
  1. ASPIRIN [Suspect]
     Indication: ANGINA UNSTABLE
     Dosage: 150 MG, TOTAL DAILY, ORAL
     Route: 048
     Dates: start: 20011126
  2. METALYSE (TENECTEPLASE) [Suspect]
     Indication: MYOCARDIAL INFARCTION
     Dosage: 8500 U, TOTAL DAILY, INTRAVENOUS
     Route: 042
     Dates: start: 20011209
  3. ENOXAPARIN SODIUM [Suspect]
     Indication: MYOCARDIAL INFARCTION
     Dosage: 80 MG, TOTAL DAILY, SUBCUTANEOUS
     Route: 058
     Dates: start: 20011209
  4. CLOPIDOGREL [Suspect]
     Indication: ANGINA UNSTABLE
     Dosage: 75 MG, TOTAL DAILY, ORAL
     Route: 048
     Dates: start: 20011126
  5. OMEPRAZOLE [Concomitant]
  6. ISOSORBIDE MONONITRATE [Concomitant]
  7. SIMVASTATIN [Concomitant]
  8. ATENOLOL [Concomitant]

REACTIONS (4)
  - CEREBRAL HAEMORRHAGE [None]
  - CHEST PAIN [None]
  - ELECTROCARDIOGRAM ST SEGMENT ELEVATION [None]
  - MYOCARDIAL INFARCTION [None]
